FAERS Safety Report 4410448-7 (Version None)
Quarter: 2004Q3

REPORT INFORMATION
  Report Type: 
  Country: None (occurrence: None)
  Receive Date: 20040728
  Receipt Date: 20031121
  Transmission Date: 20050211
  Serious: Yes (Disabling)
  Sender: FDA-Public Use
  Company Number: US-MERCK-0311USA02549

PATIENT
  Age: 50 Year
  Sex: Female
  Weight: 94 kg

DRUGS (13)
  1. TYLENOL [Concomitant]
     Route: 065
     Dates: end: 20020701
  2. PERCOGESIC [Concomitant]
     Route: 065
     Dates: end: 20020701
  3. ASPIRIN [Concomitant]
     Indication: PROPHYLAXIS
     Route: 065
     Dates: start: 20020701
  4. TENORMIN [Concomitant]
     Indication: HYPERTENSION
     Route: 065
     Dates: start: 19971030, end: 20020729
  5. NEURONTIN [Concomitant]
     Indication: PAIN
     Route: 065
     Dates: start: 20020701
  6. ADVIL [Concomitant]
     Route: 065
     Dates: end: 20020701
  7. MOTRIN [Concomitant]
     Route: 065
     Dates: end: 20020701
  8. LEVOXYL [Concomitant]
     Route: 065
  9. ALEVE [Concomitant]
     Route: 065
     Dates: end: 20020701
  10. VIOXX [Suspect]
     Indication: BACK PAIN
     Route: 048
     Dates: start: 20020709, end: 20020729
  11. ZOLOFT [Concomitant]
     Indication: DEPRESSION
     Route: 065
  12. ZOCOR [Concomitant]
     Indication: BLOOD CHOLESTEROL ABNORMAL
     Route: 065
     Dates: start: 20020729
  13. VITAMINS (UNSPECIFIED) [Concomitant]
     Route: 065
     Dates: start: 20010101

REACTIONS (10)
  - ANXIETY [None]
  - CEREBRAL HAEMORRHAGE [None]
  - CEREBROVASCULAR ACCIDENT [None]
  - EMOTIONAL DISORDER [None]
  - FATIGUE [None]
  - HEADACHE [None]
  - INJURY [None]
  - MENTAL IMPAIRMENT [None]
  - PAIN IN EXTREMITY [None]
  - VOMITING [None]
